FAERS Safety Report 17451404 (Version 3)
Quarter: 2020Q2

REPORT INFORMATION
  Report Type: Spontaneous
  Country: US (occurrence: US)
  Receive Date: 20200224
  Receipt Date: 20200617
  Transmission Date: 20200713
  Serious: No
  Sender: FDA-Public Use
  Company Number: US-PFIZER INC-2020079087

PATIENT
  Age: 57 Year
  Sex: Female
  Weight: 55.78 kg

DRUGS (1)
  1. LYRICA [Suspect]
     Active Substance: PREGABALIN
     Indication: TRIGEMINAL NEURALGIA
     Dosage: 100 MG, 3X/DAY

REACTIONS (5)
  - Drug ineffective [Unknown]
  - Intentional product use issue [Unknown]
  - Disease recurrence [Unknown]
  - Migraine [Unknown]
  - Malaise [Unknown]
